FAERS Safety Report 4731554-3 (Version None)
Quarter: 2005Q3

REPORT INFORMATION
  Report Type: 
  Country: None (occurrence: None)
  Receive Date: 20050802
  Receipt Date: 20050707
  Transmission Date: 20060218
  Serious: No
  Sender: FDA-Public Use
  Company Number: CZ-BOEHRINGER INGELHEIM PHARMACEUTICALS, INC.-2005-AP-00290AP

PATIENT
  Sex: Female

DRUGS (4)
  1. AGGRENOX [Suspect]
     Indication: CEREBROVASCULAR ACCIDENT
     Route: 048
     Dates: start: 20050615, end: 20050616
  2. GERATAM [Concomitant]
     Dates: start: 20050609
  3. CLEXANE [Concomitant]
     Dates: start: 20050609, end: 20050615
  4. GODASAL 100 [Concomitant]
     Dates: start: 20050610, end: 20050615

REACTIONS (2)
  - DERMATITIS ALLERGIC [None]
  - RASH [None]
